FAERS Safety Report 24190696 (Version 1)
Quarter: 2024Q3

REPORT INFORMATION
  Report Type: Report from Study
  Country: TH (occurrence: TH)
  Receive Date: 20240808
  Receipt Date: 20240808
  Transmission Date: 20241016
  Serious: Yes (Other)
  Sender: NOVARTIS
  Company Number: TH-002147023-NVSC2023TH249323

PATIENT
  Sex: Female

DRUGS (2)
  1. KISQALI [Suspect]
     Active Substance: RIBOCICLIB
     Indication: Breast cancer metastatic
     Dosage: 600 MG, QD (200 MG: 3 TABLETS)
     Route: 048
     Dates: start: 20230919, end: 20231003
  2. KISQALI [Suspect]
     Active Substance: RIBOCICLIB
     Dosage: 600 MG, QD (200 MG: 3 TABLETS)
     Route: 048
     Dates: start: 20231010, end: 20231114

REACTIONS (3)
  - Hepatitis [Unknown]
  - Renal function test abnormal [Recovered/Resolved]
  - Liver function test increased [Unknown]
